FAERS Safety Report 20535605 (Version 1)
Quarter: 2022Q1

REPORT INFORMATION
  Report Type: Spontaneous
  Country: JP (occurrence: JP)
  Receive Date: 20220302
  Receipt Date: 20220302
  Transmission Date: 20220424
  Serious: Yes (Other)
  Sender: FDA-Public Use
  Company Number: JP-JNJFOC-20211140680

PATIENT

DRUGS (1)
  1. FENTANYL [Suspect]
     Active Substance: FENTANYL
     Indication: Product used for unknown indication
     Dosage: DOSE UNKNOWN
     Route: 062

REACTIONS (4)
  - Dementia [Unknown]
  - Restlessness [Unknown]
  - Wrong technique in product usage process [Unknown]
  - Off label use [Unknown]
